FAERS Safety Report 12877220 (Version 1)
Quarter: 2016Q4

REPORT INFORMATION
  Report Type: Spontaneous
  Country: US (occurrence: US)
  Receive Date: 20161021
  Receipt Date: 20161021
  Transmission Date: 20170207
  Serious: Yes (Hospitalization)
  Sender: FDA-Public Use
  Company Number: None

PATIENT
  Age: 46 Year
  Sex: Female

DRUGS (8)
  1. GILENYA [Suspect]
     Active Substance: FINGOLIMOD HYDROCHLORIDE
     Indication: MULTIPLE SCLEROSIS
     Dosage: 0.5 MG CAP QD ORAL
     Route: 048
     Dates: start: 201202
  2. HYDROCO/APAP [Concomitant]
     Active Substance: ACETAMINOPHEN\HYDROCODONE
  3. ETODOLAC. [Concomitant]
     Active Substance: ETODOLAC
  4. LEXAPRO [Concomitant]
     Active Substance: ESCITALOPRAM OXALATE
  5. LUPRONDEPOT [Concomitant]
  6. AMOX/K CLAV [Concomitant]
     Active Substance: AMOXICILLIN\CLAVULANATE POTASSIUM
  7. IBUPROFEN. [Concomitant]
     Active Substance: IBUPROFEN
  8. AYGESTIN [Concomitant]
     Active Substance: NORETHINDRONE ACETATE

REACTIONS (5)
  - Multiple sclerosis relapse [None]
  - Fall [None]
  - Drug dose omission [None]
  - Confusional state [None]
  - Gait disturbance [None]

NARRATIVE: CASE EVENT DATE: 201610
